FAERS Safety Report 19958949 (Version 1)
Quarter: 2021Q4

REPORT INFORMATION
  Report Type: Spontaneous
  Country: US (occurrence: US)
  Receive Date: 20211012
  Receipt Date: 20211012
  Transmission Date: 20220304
  Serious: No
  Sender: FDA-Public Use
  Company Number: None

PATIENT

DRUGS (2)
  1. POTASSIUM PHOSPHATE, MONOBASIC [Suspect]
     Active Substance: POTASSIUM PHOSPHATE, MONOBASIC
  2. DEVICE [Suspect]
     Active Substance: DEVICE

REACTIONS (4)
  - Device malfunction [None]
  - Device alarm issue [None]
  - Drug dose omission by device [None]
  - Blood phosphorus decreased [None]
